FAERS Safety Report 5485914-6 (Version None)
Quarter: 2007Q4

REPORT INFORMATION
  Report Type: 
  Country: None (occurrence: None)
  Receive Date: 20071015
  Receipt Date: 20071005
  Transmission Date: 20080405
  Serious: Yes (Hospitalization)
  Sender: FDA-Public Use
  Company Number: JP-SHR-JP-2007-018416

PATIENT
  Age: 58 Year
  Sex: Male

DRUGS (17)
  1. SOTALOL HYDROCHLORIDE [Suspect]
     Indication: VENTRICULAR TACHYCARDIA
     Dosage: 40 MG, 1X/DAY
     Route: 048
     Dates: start: 20051225, end: 20070104
  2. SOTALOL HYDROCHLORIDE [Suspect]
     Dosage: 80 MG, 1X/DAY
     Route: 048
     Dates: start: 20070105, end: 20070501
  3. AMIODARONE [Concomitant]
     Indication: VENTRICULAR TACHYCARDIA
     Dates: start: 20050531, end: 20061103
  4. PREDNISOLONE [Concomitant]
     Dosage: 60 MG, 1X/DAY
     Dates: start: 20061103
  5. ASPIRIN [Concomitant]
     Dosage: UNK, UNK
     Route: 048
     Dates: start: 19961226, end: 20070501
  6. ITOROL [Concomitant]
     Dosage: UNK, UNK
     Route: 048
     Dates: start: 19961226, end: 20070501
  7. HERBESSOR R [Concomitant]
     Dosage: UNK, UNK
     Route: 048
     Dates: start: 20050414, end: 20070501
  8. TICLOPIDINE HCL [Concomitant]
     Dosage: UNK, UNK
     Route: 048
     Dates: start: 19961226, end: 20070501
  9. LIPITOR [Concomitant]
     Dosage: UNK, UNK
     Route: 048
     Dates: start: 20020430, end: 20070501
  10. FAMOTIDINE [Concomitant]
     Dosage: 10 MG, 1X/DAY
     Route: 048
     Dates: start: 20070112
  11. LANIRAPID [Concomitant]
     Dosage: UNK, UNK
     Route: 048
     Dates: start: 19961226, end: 20070501
  12. CANDESARTAN CILEXETIL [Concomitant]
     Dosage: UNK, UNK
     Route: 048
     Dates: start: 20050405, end: 20070501
  13. ARTIST [Concomitant]
     Dosage: UNK, UNK
     Route: 048
     Dates: start: 19961226, end: 20070501
  14. LASIX [Concomitant]
     Dosage: UNK, UNK
     Route: 048
     Dates: start: 19961226, end: 20070501
  15. ALDACTONE [Concomitant]
     Dosage: UNK, UNK
     Route: 048
     Dates: start: 20050407, end: 20070501
  16. ACARDI [Concomitant]
     Dosage: UNK, UNK
     Route: 048
     Dates: start: 20050508, end: 20070501
  17. WARFARIN POTASSIUM [Concomitant]
     Dosage: UNK, UNK
     Route: 048
     Dates: start: 20050308, end: 20070501

REACTIONS (1)
  - INTERSTITIAL LUNG DISEASE [None]
